FAERS Safety Report 10015920 (Version 3)
Quarter: 2014Q2

REPORT INFORMATION
  Report Type: Spontaneous
  Country: US (occurrence: US)
  Receive Date: 20140317
  Receipt Date: 20140402
  Transmission Date: 20141212
  Serious: Yes (Hospitalization)
  Sender: FDA-Public Use
  Company Number: US-JNJFOC-20140306417

PATIENT
  Age: 70 Year
  Sex: Male
  Weight: 60.2 kg

DRUGS (10)
  1. XARELTO [Suspect]
     Indication: CEREBROVASCULAR ACCIDENT PROPHYLAXIS
     Route: 048
     Dates: end: 20130626
  2. XARELTO [Suspect]
     Indication: ATRIAL FIBRILLATION
     Route: 048
     Dates: end: 20130626
  3. ASA [Suspect]
     Indication: PRODUCT USED FOR UNKNOWN INDICATION
     Route: 065
  4. METOPROLOL SUCCINATE [Concomitant]
     Dosage: EACH MORNING (QAM)
     Route: 048
  5. METOPROLOL SUCCINATE [Concomitant]
     Dosage: AT EACH BEDTIME (QHS)
     Route: 048
  6. MEMANTINE [Concomitant]
     Route: 048
  7. DONEPEZIL [Concomitant]
     Route: 065
  8. QUETIAPINE [Concomitant]
     Dosage: AT EACH BEDTIME (QHS)
     Route: 048
  9. DIGOXIN [Concomitant]
     Dosage: AT EACH BEDTIME(QHS)
     Route: 048
  10. DILTIAZEM [Concomitant]
     Route: 048

REACTIONS (1)
  - Cerebral haemorrhage [Recovered/Resolved]
